FAERS Safety Report 22188414 (Version 1)
Quarter: 2023Q2

REPORT INFORMATION
  Report Type: Spontaneous
  Country: US (occurrence: US)
  Receive Date: 20230408
  Receipt Date: 20230408
  Transmission Date: 20230721
  Serious: No
  Sender: FDA-Public Use
  Company Number: US-TEVA-2023-US-2871503

PATIENT
  Age: 53 Year
  Sex: Female

DRUGS (1)
  1. QVAR REDIHALER [Suspect]
     Active Substance: BECLOMETHASONE DIPROPIONATE
     Indication: Product used for unknown indication
     Dosage: INHALATION - AEROSOL, STRENGTH: 80 MCG

REACTIONS (3)
  - Dyspnoea [Unknown]
  - Device delivery system issue [Unknown]
  - Circumstance or information capable of leading to medication error [Unknown]

NARRATIVE: CASE EVENT DATE: 20230101
